FAERS Safety Report 6816215-9 (Version None)
Quarter: 2010Q3

REPORT INFORMATION
  Report Type: 
  Country: None (occurrence: None)
  Receive Date: 20100705
  Receipt Date: 20090729
  Transmission Date: 20110219
  Serious: No
  Sender: FDA-Public Use
  Company Number: US-PFIZER INC-2007046172

PATIENT
  Sex: Male
  Weight: 90.7 kg

DRUGS (4)
  1. VIAGRA [Suspect]
     Indication: ERECTILE DYSFUNCTION
     Dosage: 50 MG, UNK
     Dates: start: 20030101
  2. DETROL [Concomitant]
  3. INDOMETHACIN [Concomitant]
  4. AMBIEN [Concomitant]

REACTIONS (4)
  - BENIGN PROSTATIC HYPERPLASIA [None]
  - DRUG INEFFECTIVE [None]
  - ERECTION INCREASED [None]
  - NERVOUSNESS [None]
